FAERS Safety Report 19662084 (Version 1)
Quarter: 2021Q3

REPORT INFORMATION
  Report Type: Report from Study
  Country: BE (occurrence: BE)
  Receive Date: 20210805
  Receipt Date: 20210805
  Transmission Date: 20211014
  Serious: Yes (Other)
  Sender: FDA-Public Use
  Company Number: BE-MYLANLABS-2021M1048764

PATIENT
  Age: 68 Year
  Sex: Female
  Weight: 80.5 kg

DRUGS (27)
  1. L?THYROXINE                        /00068001/ [Concomitant]
     Active Substance: LEVOTHYROXINE
     Dosage: UNK
     Dates: start: 2005
  2. LORMETAZEPAM [Concomitant]
     Active Substance: LORMETAZEPAM
     Dosage: UNK
     Dates: start: 1992
  3. BLOOD [Concomitant]
     Active Substance: WHOLE BLOOD
     Dosage: UNK
     Dates: start: 20201028, end: 20201028
  4. FLU VACCINE VII [Concomitant]
     Active Substance: INFLUENZA VIRUS VACCINE
     Dosage: UNK
     Dates: start: 202011
  5. CARBOPLATIN. [Suspect]
     Active Substance: CARBOPLATIN
     Indication: SMALL CELL LUNG CANCER EXTENSIVE STAGE
     Route: 065
  6. PALONOSETRON. [Concomitant]
     Active Substance: PALONOSETRON HYDROCHLORIDE
     Dosage: 0.5 MILLIGRAM
     Dates: start: 20200826, end: 20200826
  7. GYNO DAKTARIN [Concomitant]
     Dosage: UNK
  8. NETUPITANT [Concomitant]
     Active Substance: NETUPITANT
     Dosage: 300 MILLIGRAM
     Dates: start: 20201028, end: 20201028
  9. ETOPOSIDE. [Suspect]
     Active Substance: ETOPOSIDE
     Indication: SMALL CELL LUNG CANCER EXTENSIVE STAGE
     Dosage: 184 MILLIGRAM, 17/SEP/2020
     Route: 065
  10. ATEZOLIZUMAB. [Suspect]
     Active Substance: ATEZOLIZUMAB
     Indication: SMALL CELL LUNG CANCER EXTENSIVE STAGE
     Dosage: 1200 MILLIGRAM;17/SEP/2020,07/OCT/2020,28/OCT/2020,18/NOV/2020,09/DEC/2020,30/DEC/2020,20/JAN/2021
     Route: 042
  11. COVID?19 VACCINE [Concomitant]
     Dosage: UNK
     Dates: start: 20210318, end: 20210318
  12. DEXAMETHASONE. [Concomitant]
     Active Substance: DEXAMETHASONE
     Dosage: 10 MILLIGRAM
     Dates: start: 20200826, end: 20200826
  13. PALONOSETRON. [Concomitant]
     Active Substance: PALONOSETRON HYDROCHLORIDE
     Dosage: 0.5 MILLIGRAM
     Dates: start: 20200917, end: 20200917
  14. PALONOSETRON. [Concomitant]
     Active Substance: PALONOSETRON HYDROCHLORIDE
     Dosage: 0.5 MILLIGRAM
     Dates: start: 20201028, end: 20201028
  15. CARBOPLATINE [Concomitant]
     Active Substance: CARBOPLATIN
     Indication: NEOPLASM MALIGNANT
     Dosage: UNK
  16. NETUPITANT [Concomitant]
     Active Substance: NETUPITANT
     Dosage: 300 MILLIGRAM
     Dates: start: 20200826, end: 20200826
  17. ETOPOSIDE. [Concomitant]
     Active Substance: ETOPOSIDE
     Indication: NEOPLASM MALIGNANT
     Dosage: UNK
  18. ATORVASTATINE                      /01326101/ [Concomitant]
     Active Substance: ATORVASTATIN
     Dosage: UNK
     Dates: start: 2000
  19. ONBREZ [Concomitant]
     Active Substance: INDACATEROL
     Dosage: UNK
     Dates: start: 20201029
  20. FUROSEMIDE. [Concomitant]
     Active Substance: FUROSEMIDE
     Dosage: UNK
     Dates: start: 2004
  21. VARIVENOL [Concomitant]
     Dosage: UNK
     Dates: start: 2017
  22. PALONOSETRON. [Concomitant]
     Active Substance: PALONOSETRON HYDROCHLORIDE
     Dosage: 0.5 MILLIGRAM
     Dates: start: 20201007, end: 20201007
  23. VOLTAREN [Concomitant]
     Active Substance: DICLOFENAC SODIUM
     Dosage: UNK
     Dates: start: 202012, end: 202012
  24. PARACETAMOL [Concomitant]
     Active Substance: ACETAMINOPHEN
     Dosage: UNK
     Dates: start: 20210203
  25. MONURIL [Concomitant]
     Active Substance: FOSFOMYCIN TROMETHAMINE
     Dosage: UNK
     Route: 065
     Dates: start: 20200930, end: 20200930
  26. BISOPROLOL [Concomitant]
     Active Substance: BISOPROLOL
     Dosage: UNK
     Dates: start: 2004
  27. NETUPITANT [Concomitant]
     Active Substance: NETUPITANT
     Dates: start: 20201007, end: 20201007

REACTIONS (23)
  - Thrombocytopenia [Not Recovered/Not Resolved]
  - Constipation [Not Recovered/Not Resolved]
  - Tremor [Not Recovered/Not Resolved]
  - Nausea [Recovered/Resolved]
  - Alopecia [Not Recovered/Not Resolved]
  - Vulvovaginal mycotic infection [Not Recovered/Not Resolved]
  - Urinary tract infection [Recovered/Resolved]
  - Hypomagnesaemia [Not Recovered/Not Resolved]
  - Decreased appetite [Recovered/Resolved]
  - Mouth ulceration [Recovered/Resolved]
  - Blood creatine phosphokinase increased [Recovered/Resolved]
  - Dysgeusia [Recovered/Resolved]
  - Hypotension [Not Recovered/Not Resolved]
  - Hypoacusis [Not Recovered/Not Resolved]
  - Contusion [Recovered/Resolved]
  - Hyperuricaemia [Recovered/Resolved]
  - Dyspnoea [Not Recovered/Not Resolved]
  - Rhinorrhoea [Not Recovered/Not Resolved]
  - Asthenia [Not Recovered/Not Resolved]
  - Chronic obstructive pulmonary disease [Not Recovered/Not Resolved]
  - Rash [Recovered/Resolved]
  - Weight decreased [Recovered/Resolved]
  - Anaemia [Recovered/Resolved]

NARRATIVE: CASE EVENT DATE: 20200827
